FAERS Safety Report 6437151-6 (Version None)
Quarter: 2009Q4

REPORT INFORMATION
  Report Type: 
  Country: None (occurrence: None)
  Receive Date: 20091112
  Receipt Date: 20091102
  Transmission Date: 20100525
  Serious: Yes (Hospitalization)
  Sender: FDA-Public Use
  Company Number: US-ELI_LILLY_AND_COMPANY-US200911000318

PATIENT
  Sex: Female

DRUGS (10)
  1. FORTEO [Suspect]
  2. METFORMIN HCL [Concomitant]
     Dosage: 2 D/F, EACH MORNING
  3. METFORMIN HCL [Concomitant]
     Dosage: 2 D/F, IN THE AFTERNOON
  4. SULFASALAZINE [Concomitant]
     Dosage: 1000 MG, 2/D
  5. ATENOLOL [Concomitant]
     Dosage: 25 MG, UNK
  6. VITAMIN D [Concomitant]
  7. CALCIUM                                 /N/A/ [Concomitant]
  8. BABY ASPIRIN [Concomitant]
  9. FISH OIL [Concomitant]
  10. ANALGESICS [Concomitant]

REACTIONS (3)
  - BLADDER PROLAPSE [None]
  - FEELING ABNORMAL [None]
  - UTERINE PROLAPSE [None]
